FAERS Safety Report 9265552 (Version 3)
Quarter: 2015Q1

REPORT INFORMATION
  Report Type: Spontaneous
  Country: US (occurrence: US)
  Receive Date: 20130501
  Receipt Date: 20150323
  Transmission Date: 20150721
  Serious: Yes (Hospitalization, Disabling, Other)
  Sender: FDA-Public Use
  Company Number: US-009507513-1304USA014616

PATIENT
  Sex: Male

DRUGS (1)
  1. PROPECIA [Suspect]
     Active Substance: FINASTERIDE
     Indication: ALOPECIA
     Dosage: 1 MG, QD
     Route: 048
     Dates: start: 2000, end: 2012

REACTIONS (27)
  - Organic erectile dysfunction [Recovering/Resolving]
  - Tonsillectomy [Unknown]
  - Arthritis [Unknown]
  - Back pain [Unknown]
  - Varicocele [Unknown]
  - Asthenia [Recovering/Resolving]
  - Urinary tract obstruction [Unknown]
  - Sexual dysfunction [Not Recovered/Not Resolved]
  - Depression [Not Recovered/Not Resolved]
  - Hypogonadism male [Unknown]
  - Gynaecomastia [Unknown]
  - Male orgasmic disorder [Unknown]
  - Cholecystectomy [Unknown]
  - Prostatitis [Unknown]
  - Hernia repair [Unknown]
  - Arthroscopy [Unknown]
  - Vertebral foraminal stenosis [Not Recovered/Not Resolved]
  - Infertility male [Unknown]
  - Weight increased [Recovering/Resolving]
  - Acne [Unknown]
  - Hair transplant [Unknown]
  - Post procedural complication [Unknown]
  - Benign prostatic hyperplasia [Unknown]
  - Lower urinary tract symptoms [Unknown]
  - Anxiety [Not Recovered/Not Resolved]
  - Scar excision [Unknown]
  - Muscle twitching [Not Recovered/Not Resolved]

NARRATIVE: CASE EVENT DATE: 2003
